FAERS Safety Report 11349121 (Version 2)
Quarter: 2020Q2

REPORT INFORMATION
  Report Type: Report from Study
  Country: DE (occurrence: DE)
  Receive Date: 20150807
  Receipt Date: 20200409
  Transmission Date: 20200713
  Serious: Yes (Congenital Anomaly, Other)
  Sender: FDA-Public Use
  Company Number: DE-009507513-1507DEU013346

PATIENT
  Age: 1 Day
  Sex: Female
  Weight: 2.43 kg

DRUGS (4)
  1. BISOPROLOL [Suspect]
     Active Substance: BISOPROLOL
     Dosage: UNK
     Route: 064
     Dates: start: 20140604
  2. LOSARTAN POTASSIUM. [Suspect]
     Active Substance: LOSARTAN POTASSIUM
     Dosage: 10 MG, QD
     Route: 064
     Dates: start: 20140604, end: 20140731
  3. RHOPHYLAC [Concomitant]
     Active Substance: HUMAN RHO(D) IMMUNE GLOBULIN
     Dosage: UNK
     Route: 064
     Dates: start: 20150107, end: 20150107
  4. FOLIC ACID. [Concomitant]
     Active Substance: FOLIC ACID
     Dosage: UNK
     Route: 064
     Dates: start: 20140724, end: 20150219

REACTIONS (7)
  - Talipes [Recovered/Resolved with Sequelae]
  - Congenital umbilical hernia [Unknown]
  - Patent ductus arteriosus [Unknown]
  - Respiratory disorder neonatal [Recovered/Resolved]
  - Atrial septal defect [Unknown]
  - Small for dates baby [Recovered/Resolved]
  - Foetal exposure during pregnancy [Recovered/Resolved]

NARRATIVE: CASE EVENT DATE: 20150220
